FAERS Safety Report 21129286 (Version 6)
Quarter: 2022Q3

REPORT INFORMATION
  Report Type: Report from Study
  Country: CA (occurrence: CA)
  Receive Date: 20220725
  Receipt Date: 20220919
  Transmission Date: 20221027
  Serious: Yes (Other)
  Sender: FDA-Public Use
  Company Number: CA-BRISTOL-MYERS SQUIBB COMPANY-2022-059743

PATIENT
  Age: 82 Year
  Sex: Female
  Weight: 50 kg

DRUGS (2)
  1. OPDIVO [Suspect]
     Active Substance: NIVOLUMAB
     Indication: Gastric cancer
     Dosage: 1863391; 30-SEP-2024
     Route: 042
     Dates: start: 20220531
  2. OPDIVO [Suspect]
     Active Substance: NIVOLUMAB
     Indication: Adenocarcinoma
     Route: 042
     Dates: start: 2022

REACTIONS (20)
  - Heart rate increased [Recovering/Resolving]
  - Abdominal pain upper [Recovered/Resolved]
  - COVID-19 [Unknown]
  - Fatigue [Unknown]
  - Pain [Not Recovered/Not Resolved]
  - Purpura [Not Recovered/Not Resolved]
  - Anxiety [Not Recovered/Not Resolved]
  - Nausea [Not Recovered/Not Resolved]
  - Vomiting [Recovering/Resolving]
  - Dyspepsia [Unknown]
  - Dry mouth [Unknown]
  - Constipation [Not Recovered/Not Resolved]
  - Blood disorder [Unknown]
  - Depression [Unknown]
  - Feeling abnormal [Unknown]
  - Somnolence [Unknown]
  - Malaise [Unknown]
  - Dyspnoea [Unknown]
  - Psychiatric symptom [Unknown]
  - Condition aggravated [Unknown]

NARRATIVE: CASE EVENT DATE: 20220101
